FAERS Safety Report 8625665-X (Version None)
Quarter: 2012Q3

REPORT INFORMATION
  Report Type: 
  Country: None (occurrence: None)
  Receive Date: 20120827
  Receipt Date: 20120820
  Transmission Date: 20120928
  Serious: Yes (Hospitalization)
  Sender: FDA-Public Use
  Company Number: DE-JNJFOC-20120803639

PATIENT
  Age: 8 Decade
  Sex: Female

DRUGS (9)
  1. TRAMADOL HCL [Concomitant]
     Indication: PRODUCT USED FOR UNKNOWN INDICATION
     Dates: start: 20110802
  2. ETANERCEPT [Concomitant]
     Dates: start: 20111101
  3. COLECALCIFEROL [Concomitant]
     Dates: start: 20100121
  4. SIMVASTATIN [Concomitant]
     Dates: start: 20090121
  5. SIMPONI [Suspect]
     Indication: RHEUMATOID ARTHRITIS
     Route: 058
     Dates: start: 20100901, end: 20111101
  6. LEFLUNOMIDE [Suspect]
     Indication: PRODUCT USED FOR UNKNOWN INDICATION
     Dates: start: 19900101
  7. PANTOPRAZOLE [Concomitant]
     Dates: start: 20110802
  8. METAMIZOL [Concomitant]
     Dates: start: 20110802
  9. PREDNISOLONE [Concomitant]
     Dates: start: 20090625

REACTIONS (1)
  - ORAL INFECTION [None]
